FAERS Safety Report 21830425 (Version 1)
Quarter: 2023Q1

REPORT INFORMATION
  Report Type: Spontaneous
  Country: US (occurrence: None)
  Receive Date: 20230105
  Receipt Date: 20230105
  Transmission Date: 20230418
  Serious: No
  Sender: FDA-Public Use
  Company Number: None

PATIENT
  Age: 46 Year
  Sex: Female
  Weight: 66.7 kg

DRUGS (1)
  1. INDOCYANINE GREEN [Suspect]
     Active Substance: INDOCYANINE GREEN

REACTIONS (4)
  - Hepatobiliary procedural complication [None]
  - Device information output issue [None]
  - Device computer issue [None]
  - Drug ineffective [None]

NARRATIVE: CASE EVENT DATE: 20221221
